FAERS Safety Report 6400913-5 (Version None)
Quarter: 2009Q4

REPORT INFORMATION
  Report Type: 
  Country: None (occurrence: None)
  Receive Date: 20091009
  Receipt Date: 20090930
  Transmission Date: 20100525
  Serious: Yes (Other)
  Sender: FDA-Public Use
  Company Number: 231426J09USA

PATIENT
  Age: 59 Year
  Sex: Female

DRUGS (3)
  1. REBIF [Suspect]
     Indication: MULTIPLE SCLEROSIS
     Dosage: 44 MCG, 3 IN 1 WEEKS, SUBCUTANEOUS
     Route: 058
     Dates: end: 20070701
  2. REBIF [Suspect]
     Indication: MULTIPLE SCLEROSIS
     Dosage: 44 MCG, 3 IN 1 WEEKS, SUBCUTANEOUS
     Route: 058
     Dates: start: 20090513
  3. LEVOTHYROXINE SODIUM [Concomitant]

REACTIONS (5)
  - ABDOMINAL DISCOMFORT [None]
  - AORTIC VALVE INCOMPETENCE [None]
  - GALLBLADDER DISORDER [None]
  - SKIN DISCOLOURATION [None]
  - VOMITING [None]
